FAERS Safety Report 7456922-0 (Version None)
Quarter: 2011Q1

REPORT INFORMATION
  Report Type: 
  Country: None (occurrence: None)
  Receive Date: 20110302
  Receipt Date: 20110113
  Transmission Date: 20110831
  Serious: Yes (Hospitalization)
  Sender: FDA-Public Use
  Company Number: 011800

PATIENT
  Sex: Female
  Weight: 45.4 kg

DRUGS (7)
  1. MERCAPTOPURINE [Concomitant]
  2. VITAMIN B-12 [Concomitant]
  3. FERROUS SULFATE TAB [Concomitant]
  4. CIMZIA [Suspect]
     Indication: CROHN'S DISEASE
     Dosage: 200 MG 1X/2 WEEKS SUBCUTANEOUS, 200 MG 1X/2 WEEKS SUBCUTANEOUS
     Route: 058
     Dates: start: 20100430
  5. CIMZIA [Suspect]
     Indication: CROHN'S DISEASE
     Dosage: 200 MG 1X/2 WEEKS SUBCUTANEOUS, 200 MG 1X/2 WEEKS SUBCUTANEOUS
     Route: 058
     Dates: end: 20100101
  6. PREDNISONE TAB [Concomitant]
  7. PRENATAL VITAMINS [Concomitant]

REACTIONS (2)
  - DRUG DOSE OMISSION [None]
  - CROHN'S DISEASE [None]
